FAERS Safety Report 4338249-9 (Version None)
Quarter: 2004Q2

REPORT INFORMATION
  Report Type: 
  Country: None (occurrence: None)
  Receive Date: 20040409
  Receipt Date: 20040324
  Transmission Date: 20050107
  Serious: Yes (Disabling)
  Sender: FDA-Public Use
  Company Number: NO-JNJFOC-20040305414

PATIENT
  Age: 55 Year
  Sex: Female

DRUGS (2)
  1. REMICADE [Suspect]
     Indication: RHEUMATOID ARTHRITIS
     Dosage: 300 MG, 1 IN 8 WEEK, INTRAVENOUS
     Route: 042
     Dates: start: 20020101, end: 20040301
  2. METHOTREXATE [Concomitant]

REACTIONS (6)
  - BURNING SENSATION [None]
  - COUGH [None]
  - RASH MACULO-PAPULAR [None]
  - SKIN DISORDER [None]
  - SKIN FISSURES [None]
  - THROAT IRRITATION [None]
